FAERS Safety Report 19168929 (Version 4)
Quarter: 2021Q3

REPORT INFORMATION
  Report Type: Spontaneous
  Country: US (occurrence: US)
  Receive Date: 20210422
  Receipt Date: 20210813
  Transmission Date: 20211014
  Serious: Yes (Other)
  Sender: FDA-Public Use
  Company Number: US-BIOVITRUM-2021US2279

PATIENT
  Sex: Male

DRUGS (3)
  1. PREDNISONE. [Suspect]
     Active Substance: PREDNISONE
  2. KINERET [Suspect]
     Active Substance: ANAKINRA
     Indication: RHEUMATOID ARTHRITIS
     Route: 058
     Dates: start: 20190312
  3. KINERET [Suspect]
     Active Substance: ANAKINRA
     Route: 058

REACTIONS (9)
  - Arthritis [Unknown]
  - Renal failure [Unknown]
  - Pneumonia [Unknown]
  - Nocturia [Unknown]
  - Hunger [Unknown]
  - Irritability [Unknown]
  - Illness [Unknown]
  - Intentional product misuse [Unknown]
  - Product dose omission issue [Unknown]
